FAERS Safety Report 4297292-9 (Version None)
Quarter: 2004Q1

REPORT INFORMATION
  Report Type: 
  Country: None (occurrence: None)
  Receive Date: 20040213
  Receipt Date: 20040209
  Transmission Date: 20041129
  Serious: Yes (Hospitalization)
  Sender: FDA-Public Use
  Company Number: 200401801

PATIENT
  Age: 19 Year
  Sex: Female

DRUGS (1)
  1. ACETAMINOPHEN [Suspect]
     Dosage: PO
     Route: 048

REACTIONS (3)
  - DRUG TOXICITY [None]
  - OVERDOSE [None]
  - VOMITING [None]
